APPROVED DRUG PRODUCT: ERYTHROMYCIN LACTOBIONATE
Active Ingredient: ERYTHROMYCIN LACTOBIONATE
Strength: EQ 500MG BASE/VIAL
Dosage Form/Route: INJECTABLE;INJECTION
Application: A216761 | Product #001 | TE Code: AP
Applicant: GLAND PHARMA LTD
Approved: Nov 19, 2024 | RLD: No | RS: No | Type: RX